FAERS Safety Report 24098211 (Version 4)
Quarter: 2024Q4

REPORT INFORMATION
  Report Type: Spontaneous
  Country: US (occurrence: US)
  Receive Date: 20240716
  Receipt Date: 20241227
  Transmission Date: 20250115
  Serious: Yes (Other)
  Sender: SANOFI AVENTIS
  Company Number: US-SA-SAC20240711000694

PATIENT
  Age: 33 Year
  Sex: Male

DRUGS (2)
  1. ALPROLIX [Suspect]
     Active Substance: EFTRENONACOG ALFA
     Indication: Factor IX deficiency
     Dosage: 8600 IU, QOW
     Route: 042
     Dates: start: 202201
  2. ALPROLIX [Suspect]
     Active Substance: EFTRENONACOG ALFA
     Indication: Factor IX deficiency
     Dosage: 8600 IU, QOW
     Route: 042
     Dates: start: 202201

REACTIONS (7)
  - Haemarthrosis [Recovering/Resolving]
  - Haemorrhage [Not Recovered/Not Resolved]
  - Cystitis [Unknown]
  - Arthralgia [Recovering/Resolving]
  - Epistaxis [Unknown]
  - Influenza [Unknown]
  - Inappropriate schedule of product administration [Unknown]

NARRATIVE: CASE EVENT DATE: 20220101
